FAERS Safety Report 14060680 (Version 1)
Quarter: 2017Q4

REPORT INFORMATION
  Report Type: Report from Study
  Country: DE (occurrence: DE)
  Receive Date: 20171007
  Receipt Date: 20171007
  Transmission Date: 20180321
  Serious: Yes (Hospitalization, Other)
  Sender: FDA-Public Use
  Company Number: DE-ROCHE-2005056

PATIENT

DRUGS (2)
  1. RITUXIMAB. [Suspect]
     Active Substance: RITUXIMAB
     Route: 042
  2. RITUXIMAB. [Suspect]
     Active Substance: RITUXIMAB
     Indication: B-CELL LYMPHOMA
     Route: 042

REACTIONS (6)
  - Pneumonia [Recovered/Resolved]
  - Bone marrow failure [Unknown]
  - Epistaxis [Unknown]
  - Dyspnoea [Unknown]
  - Pancytopenia [Unknown]
  - Febrile neutropenia [Unknown]
